FAERS Safety Report 13158351 (Version 1)
Quarter: 2017Q1

REPORT INFORMATION
  Report Type: Spontaneous
  Country: JP (occurrence: JP)
  Receive Date: 20170127
  Receipt Date: 20170127
  Transmission Date: 20170428
  Serious: Yes (Other)
  Sender: FDA-Public Use
  Company Number: JP-ELI_LILLY_AND_COMPANY-JP201701008789

PATIENT
  Age: 45 Year
  Sex: Male

DRUGS (3)
  1. KETAMINE                           /00171202/ [Interacting]
     Active Substance: KETAMINE
     Indication: GENERAL ANAESTHESIA
     Route: 042
  2. CYMBALTA [Suspect]
     Active Substance: DULOXETINE HYDROCHLORIDE
     Indication: PRODUCT USED FOR UNKNOWN INDICATION
     Route: 048
  3. PROPOFOL. [Interacting]
     Active Substance: PROPOFOL
     Indication: GENERAL ANAESTHESIA
     Route: 042

REACTIONS (2)
  - Procedural hypotension [Recovering/Resolving]
  - Drug interaction [Unknown]
